FAERS Safety Report 24301078 (Version 1)
Quarter: 2024Q3

REPORT INFORMATION
  Report Type: Spontaneous
  Country: US (occurrence: US)
  Receive Date: 20240910
  Receipt Date: 20240910
  Transmission Date: 20241017
  Serious: No
  Sender: PADAGIS
  Company Number: US-PADAGIS-2024PAD01414

PATIENT

DRUGS (1)
  1. TRETINOIN [Suspect]
     Active Substance: TRETINOIN
     Indication: Chloasma
     Dosage: UNK
     Route: 065

REACTIONS (3)
  - Application site dryness [Unknown]
  - Product use in unapproved indication [Unknown]
  - Product packaging quantity issue [Unknown]
